FAERS Safety Report 6398191-9 (Version None)
Quarter: 2009Q3

REPORT INFORMATION
  Report Type: 
  Country: None (occurrence: None)
  Receive Date: 20090929
  Receipt Date: 20090909
  Transmission Date: 20100115
  Serious: Yes (Death, Other)
  Sender: FDA-Public Use
  Company Number: 2009AA000937

PATIENT
  Age: 59 Year
  Sex: Female
  Weight: 70 kg

DRUGS (3)
  1. RELESS WESPENGIFT (PHARMALGEN (802 (VESPULA SPP.) [Suspect]
     Indication: ALLERGY TO ARTHROPOD STING
     Dosage: ; MONTHLY; ORAL
     Route: 048
     Dates: start: 19940101, end: 19990501
  2. LEVOTHYROXINE SODIUM [Concomitant]
  3. CYCLO-MENORETTE [Concomitant]

REACTIONS (1)
  - BREAST CANCER FEMALE [None]
